FAERS Safety Report 5448409-1 (Version None)
Quarter: 2007Q3

REPORT INFORMATION
  Report Type: 
  Country: None (occurrence: None)
  Receive Date: 20070905
  Receipt Date: 20070820
  Transmission Date: 20080115
  Serious: Yes (Other)
  Sender: FDA-Public Use
  Company Number: DSU-2007-00312

PATIENT
  Age: 79 Year
  Sex: Female
  Weight: 54.8852 kg

DRUGS (6)
  1. BENICAR HCT [Suspect]
     Indication: HYPERTENSION
     Dosage: 20/12.5 MG, PER ORAL
     Route: 048
     Dates: start: 20070423, end: 20070612
  2. BENICAR [Suspect]
     Indication: HYPERTENSION
     Dosage: PER ORAL
     Route: 048
  3. VERAPAMIL (VERAPAMIL) (180 MILLIGRAM) (VERAPAMIL) [Concomitant]
  4. INDERAL (PROPRANOLOL HYDROCHLORIDE) (10 MILLIGRAM) (PROPRANOLOL HYDROC [Concomitant]
  5. CLONIDINE (CLONIDINE) (0.1 MILLIGRAM) (CLONIDINE) [Concomitant]
  6. ASA (ACETYLSALICYLIC ACID) (81 MILLIGRAM) (ACETYLSALICYLIC ACID) [Concomitant]

REACTIONS (2)
  - CEREBROVASCULAR ACCIDENT [None]
  - HYPONATRAEMIA [None]
